FAERS Safety Report 11356332 (Version 5)
Quarter: 2015Q3

REPORT INFORMATION
  Report Type: Spontaneous
  Country: US (occurrence: US)
  Receive Date: 20150807
  Receipt Date: 20150904
  Transmission Date: 20151125
  Serious: Yes (Other)
  Sender: FDA-Public Use
  Company Number: US-BAYER-2015-389718

PATIENT
  Age: 54 Year
  Sex: Male
  Weight: 97.51 kg

DRUGS (9)
  1. OXYCODONE [Concomitant]
     Active Substance: OXYCODONE
  2. DIAZEPAM. [Concomitant]
     Active Substance: DIAZEPAM
  3. PROBIOTICA [Concomitant]
     Active Substance: PROBIOTICS NOS
  4. MILK OF MAGNESIA ORIGINAL [Suspect]
     Active Substance: MAGNESIUM HYDROXIDE
     Indication: MUSCLE SPASMS
  5. SIMVASTATIN. [Concomitant]
     Active Substance: SIMVASTATIN
  6. DULCOLAX [Concomitant]
     Active Substance: BISACODYL OR DOCUSATE SODIUM
  7. PROTONIX [Concomitant]
     Active Substance: PANTOPRAZOLE SODIUM
  8. MILK OF MAGNESIA ORIGINAL [Suspect]
     Active Substance: MAGNESIUM HYDROXIDE
     Indication: LAXATIVE SUPPORTIVE CARE
     Dosage: 2 DF, PRN
     Route: 048
     Dates: start: 20150722, end: 20150727
  9. MIRALAX [Suspect]
     Active Substance: POLYETHYLENE GLYCOL 3350

REACTIONS (8)
  - Product use issue [Unknown]
  - Haematochezia [Recovered/Resolved]
  - Dysgeusia [None]
  - Retching [Unknown]
  - Product use issue [None]
  - Nausea [Unknown]
  - Diarrhoea [Unknown]
  - Decreased appetite [Unknown]

NARRATIVE: CASE EVENT DATE: 20150722
